FAERS Safety Report 10591466 (Version 1)
Quarter: 2014Q4

REPORT INFORMATION
  Report Type: Spontaneous
  Country: US (occurrence: US)
  Receive Date: 20141118
  Receipt Date: 20141118
  Transmission Date: 20150529
  Serious: No
  Sender: FDA-Public Use
  Company Number: US-GLAXOSMITHKLINE-US2014GSK013087

PATIENT
  Sex: Female

DRUGS (4)
  1. ABREVA [Suspect]
     Active Substance: DOCOSANOL
     Indication: ORAL HERPES
     Route: 061
  2. CARMEX [Suspect]
     Active Substance: CAMPHOR\MENTHOL\PHENOL\POTASSIUM ALUM\SALICYLIC ACID
     Indication: ORAL HERPES
  3. ICE PACK (NOS) [Suspect]
     Active Substance: DEVICE
     Indication: ORAL HERPES
  4. UNSPECIFIED MEDICATION [Suspect]
     Active Substance: UNSPECIFIED INGREDIENT
     Indication: ORAL HERPES

REACTIONS (1)
  - Drug ineffective [Unknown]
